FAERS Safety Report 8433108-4 (Version None)
Quarter: 2012Q2

REPORT INFORMATION
  Report Type: 
  Country: None (occurrence: None)
  Receive Date: 20120613
  Receipt Date: 20120607
  Transmission Date: 20120825
  Serious: Yes (Hospitalization)
  Sender: FDA-Public Use
  Company Number: ES-ROCHE-1077306

PATIENT
  Sex: Male
  Weight: 88 kg

DRUGS (4)
  1. IBUPROFEN [Suspect]
     Indication: PAIN
     Route: 048
  2. AVASTIN [Suspect]
     Indication: METASTATIC RENAL CELL CARCINOMA
     Route: 042
     Dates: start: 20090610, end: 20091106
  3. EVEROLIMUS [Suspect]
     Indication: METASTATIC RENAL CELL CARCINOMA
     Route: 048
     Dates: start: 20090610
  4. ACETAMINOPHEN [Concomitant]

REACTIONS (6)
  - CHRONIC OBSTRUCTIVE PULMONARY DISEASE [None]
  - RENAL FAILURE ACUTE [None]
  - RESPIRATORY TRACT INFECTION [None]
  - HYPERTENSION [None]
  - TUBULOINTERSTITIAL NEPHRITIS [None]
  - ANAEMIA [None]
